FAERS Safety Report 13167396 (Version 1)
Quarter: 2017Q1

REPORT INFORMATION
  Report Type: Spontaneous
  Country: US (occurrence: US)
  Receive Date: 20170130
  Receipt Date: 20170130
  Transmission Date: 20170428
  Serious: Yes (Life-Threatening, Hospitalization, Disabling, Other)
  Sender: FDA-Public Use
  Company Number: None

PATIENT
  Age: 74 Year
  Sex: Male
  Weight: 83.25 kg

DRUGS (6)
  1. METOPROLOL. [Concomitant]
     Active Substance: METOPROLOL
  2. DIGOXIN. [Concomitant]
     Active Substance: DIGOXIN
  3. ATROVASTATIN [Concomitant]
     Active Substance: ATORVASTATIN CALCIUM
  4. MEMANTUINE [Concomitant]
  5. WARFARIN [Concomitant]
     Active Substance: WARFARIN
  6. XARELTO [Suspect]
     Active Substance: RIVAROXABAN
     Indication: ATRIAL FIBRILLATION
     Route: 048

REACTIONS (3)
  - Transurethral prostatectomy [None]
  - Cerebrovascular accident [None]
  - Incontinence [None]

NARRATIVE: CASE EVENT DATE: 20140428
